FAERS Safety Report 14369744 (Version 1)
Quarter: 2018Q1

REPORT INFORMATION
  Report Type: Spontaneous
  Country: NO (occurrence: NO)
  Receive Date: 20180110
  Receipt Date: 20180110
  Transmission Date: 20180509
  Serious: Yes (Hospitalization, Disabling, Other)
  Sender: FDA-Public Use
  Company Number: NO-CIPLA LTD.-2017NO30924

PATIENT

DRUGS (9)
  1. CETIRIZIN BLUEFISH [Concomitant]
     Dosage: 10 MG, QD
     Route: 048
  2. KLEXANE [Concomitant]
     Active Substance: ENOXAPARIN
     Indication: EMBOLISM
     Dosage: UNK, PATIENT USES KLEXANE 100 MG/ML 1 SYRINGE WHEN INR {1,8
     Route: 058
  3. CALCIGRAN FORTE [Concomitant]
     Active Substance: CALCIUM CARBONATE\CHOLECALCIFEROL
     Dosage: 1 DF, QD
     Route: 048
  4. MAREVAN [Concomitant]
     Active Substance: WARFARIN SODIUM
     Indication: EMBOLISM
     Dosage: UNK, DOSE ADJUSTED ACCORDING TO INR. MOST OF THE TIME 6 TABLETS PER DAY (HIGH DOSE)
     Route: 048
     Dates: start: 1987
  5. FEXOFENADINE [Concomitant]
     Active Substance: FEXOFENADINE\FEXOFENADINE HYDROCHLORIDE
     Dosage: 120 MG, QD
     Route: 048
  6. PROLIA [Concomitant]
     Active Substance: DENOSUMAB
     Indication: EMBOLISM
     Dosage: 1 DF, 60 MG/ML
     Route: 058
  7. CITALOPRAM [Suspect]
     Active Substance: CITALOPRAM HYDROBROMIDE
     Indication: ANXIETY
     Dosage: 20 MG, UNK
     Route: 048
     Dates: end: 2015
  8. ESCITALOPRAM [Suspect]
     Active Substance: ESCITALOPRAM OXALATE
     Indication: DEPRESSED MOOD
     Dosage: UNK
     Route: 048
     Dates: start: 20020502, end: 20170805
  9. VITAMIN B12 DEPOT [Concomitant]
     Dosage: 1 MG, UNK
     Route: 030

REACTIONS (11)
  - Chills [Recovered/Resolved]
  - Paraesthesia [Recovered/Resolved]
  - Dyspnoea [Recovered/Resolved]
  - Dysstasia [Recovered/Resolved]
  - Limb discomfort [Recovered/Resolved]
  - Cold sweat [Recovered/Resolved]
  - Presyncope [Recovered/Resolved]
  - Loss of consciousness [Recovered/Resolved]
  - Seizure [Recovered/Resolved]
  - Syncope [Recovered/Resolved]
  - Muscular weakness [Recovered/Resolved]

NARRATIVE: CASE EVENT DATE: 2015
